FAERS Safety Report 13488760 (Version 1)
Quarter: 2017Q2

REPORT INFORMATION
  Report Type: Spontaneous
  Country: US (occurrence: US)
  Receive Date: 20170426
  Receipt Date: 20170426
  Transmission Date: 20170830
  Serious: No
  Sender: FDA-Public Use
  Company Number: None

PATIENT
  Age: 25 Year
  Sex: Male

DRUGS (1)
  1. AMPYRA [Suspect]
     Active Substance: DALFAMPRIDINE
     Indication: MULTIPLE SCLEROSIS
     Route: 048
     Dates: start: 20160718

REACTIONS (5)
  - Laboratory test abnormal [None]
  - Vitamin D decreased [None]
  - Alanine aminotransferase increased [None]
  - JC virus test positive [None]
  - Blood bilirubin increased [None]

NARRATIVE: CASE EVENT DATE: 20170329
